FAERS Safety Report 8207067-3 (Version None)
Quarter: 2012Q1

REPORT INFORMATION
  Report Type: 
  Country: None (occurrence: None)
  Receive Date: 20120312
  Receipt Date: 20120229
  Transmission Date: 20120608
  Serious: Yes (Disabling, Other)
  Sender: FDA-Public Use
  Company Number: 2012-00362

PATIENT
  Age: 56 Year
  Sex: Female
  Weight: 90 kg

DRUGS (3)
  1. SIMVASTATIN [Suspect]
     Indication: CARDIOVASCULAR EVENT PROPHYLAXIS
     Dosage: (40 MG),ORAL
     Route: 048
     Dates: end: 20120201
  2. SIMVASTATIN [Suspect]
     Indication: HYPERTENSION
     Dosage: (40 MG),ORAL
     Route: 048
     Dates: end: 20120201
  3. BENDROFLUAZIDE (BENDROFLUAZIDE) [Concomitant]

REACTIONS (1)
  - EAR CONGESTION [None]
